FAERS Safety Report 24460100 (Version 1)
Quarter: 2024Q4

REPORT INFORMATION
  Report Type: Spontaneous
  Country: KR (occurrence: KR)
  Receive Date: 20241018
  Receipt Date: 20241018
  Transmission Date: 20250114
  Serious: No
  Sender: ROCHE
  Company Number: KR-ROCHE-3552246

PATIENT
  Age: 60 Year
  Sex: Female
  Weight: 56.0 kg

DRUGS (1)
  1. MABTHERA [Suspect]
     Active Substance: RITUXIMAB
     Indication: Liver transplant
     Dosage: SUBSEQUENT DOSE ON 08/FEB/2023
     Route: 041
     Dates: start: 20221114, end: 20221114

REACTIONS (5)
  - Flushing [Recovered/Resolved]
  - Rash [Recovered/Resolved]
  - Urticaria [Recovered/Resolved]
  - Pruritus [Recovered/Resolved]
  - Pruritus [Recovered/Resolved]

NARRATIVE: CASE EVENT DATE: 20221114
